FAERS Safety Report 23742153 (Version 1)
Quarter: 2024Q2

REPORT INFORMATION
  Report Type: Spontaneous
  Country: US (occurrence: None)
  Receive Date: 20240415
  Receipt Date: 20240415
  Transmission Date: 20240716
  Serious: Yes (Death)
  Sender: FDA-Public Use
  Company Number: US-FARMAPROD-202402-0510

PATIENT
  Age: 53 Year
  Sex: Female
  Weight: 51.756 kg

DRUGS (3)
  1. OXERVATE [Suspect]
     Active Substance: CENEGERMIN-BKBJ
     Indication: Neurotrophic keratopathy
     Route: 047
     Dates: start: 20240211
  2. ANASTROZOLE [Concomitant]
     Active Substance: ANASTROZOLE
  3. VERZENIO [Concomitant]
     Active Substance: ABEMACICLIB
     Dosage: 14^S

REACTIONS (4)
  - Death [Fatal]
  - Headache [Unknown]
  - Periorbital swelling [Unknown]
  - Weight decreased [Unknown]

NARRATIVE: CASE EVENT DATE: 20240214
